FAERS Safety Report 6024451-7 (Version None)
Quarter: 2008Q4

REPORT INFORMATION
  Report Type: 
  Country: None (occurrence: None)
  Receive Date: 20081231
  Receipt Date: 20081222
  Transmission Date: 20090506
  Serious: Yes (Other)
  Sender: FDA-Public Use
  Company Number: PHHY2008DE33002

PATIENT
  Sex: Female

DRUGS (2)
  1. LIORESAL [Suspect]
     Dosage: 10 MG, UNK
     Route: 048
     Dates: start: 19920101
  2. BACLOFEN [Suspect]
     Route: 048

REACTIONS (1)
  - BLADDER SPASM [None]
